FAERS Safety Report 10444517 (Version 1)
Quarter: 2014Q3

REPORT INFORMATION
  Report Type: Spontaneous
  Country: US (occurrence: None)
  Receive Date: 20140909
  Receipt Date: 20140909
  Transmission Date: 20150326
  Serious: Yes (Other)
  Sender: FDA-Public Use
  Company Number: None

PATIENT
  Age: 56 Year
  Sex: Male
  Weight: 90.72 kg

DRUGS (3)
  1. OXYCONTIN [Suspect]
     Active Substance: OXYCODONE HYDROCHLORIDE
     Indication: PAIN IN EXTREMITY
     Dosage: 60  TWICE DAILY TAKEN BY MOUTH
     Route: 048
     Dates: start: 20140809, end: 20140908
  2. OXYCONTIN [Suspect]
     Active Substance: OXYCODONE HYDROCHLORIDE
     Indication: OSTEOARTHRITIS
     Dosage: 60  TWICE DAILY TAKEN BY MOUTH
     Route: 048
     Dates: start: 20140809, end: 20140908
  3. OXYCONTIN [Suspect]
     Active Substance: OXYCODONE HYDROCHLORIDE
     Indication: ARTHRALGIA
     Dosage: 60  TWICE DAILY TAKEN BY MOUTH
     Route: 048
     Dates: start: 20140809, end: 20140908

REACTIONS (5)
  - Euphoric mood [None]
  - Withdrawal syndrome [None]
  - Impaired driving ability [None]
  - Tremor [None]
  - Abnormal behaviour [None]

NARRATIVE: CASE EVENT DATE: 20140908
